FAERS Safety Report 4918218-8 (Version None)
Quarter: 2006Q1

REPORT INFORMATION
  Report Type: 
  Country: None (occurrence: None)
  Receive Date: 20060215
  Receipt Date: 20060206
  Transmission Date: 20060701
  Serious: Yes (Hospitalization, Other)
  Sender: FDA-Public Use
  Company Number: 2004-11-1476

PATIENT
  Age: 54 Year
  Sex: Male

DRUGS (5)
  1. CELESTAMINE TAB [Suspect]
     Indication: UPPER RESPIRATORY TRACT INFECTION
     Dosage: 2 TAB ORAL
     Route: 048
     Dates: start: 20030524
  2. THERAPEUTIC AGENT [Suspect]
  3. CIPROFLOXACIN HYDROCHLORIDE TABLETS [Concomitant]
  4. VIBRAMYCIN TABLETS [Concomitant]
  5. LOXONIN TABLETS [Concomitant]

REACTIONS (2)
  - CONFUSIONAL STATE [None]
  - CONVULSION [None]
